FAERS Safety Report 7073730-3 (Version None)
Quarter: 2010Q4

REPORT INFORMATION
  Report Type: 
  Country: None (occurrence: None)
  Receive Date: 20101029
  Receipt Date: 20100806
  Transmission Date: 20110411
  Serious: No
  Sender: FDA-Public Use
  Company Number: A0874406A

PATIENT
  Age: 63 Year
  Sex: Female

DRUGS (5)
  1. ADVAIR DISKUS 100/50 [Suspect]
     Indication: ASTHMA
     Dosage: 1PUFF TWICE PER DAY
     Route: 055
     Dates: start: 20100623, end: 20100731
  2. SIMVASTATIN [Concomitant]
  3. ZOLOFT [Concomitant]
  4. TOPIRAMATE [Concomitant]
  5. RELPAX [Concomitant]

REACTIONS (5)
  - COUGH [None]
  - DYSPHONIA [None]
  - HEADACHE [None]
  - NAUSEA [None]
  - VISION BLURRED [None]
